FAERS Safety Report 19476964 (Version 1)
Quarter: 2021Q2

REPORT INFORMATION
  Report Type: Spontaneous
  Country: US (occurrence: US)
  Receive Date: 20210629
  Receipt Date: 20210629
  Transmission Date: 20210717
  Serious: Yes (Death)
  Sender: FDA-Public Use
  Company Number: None

PATIENT
  Age: 73 Year
  Sex: Male

DRUGS (34)
  1. METOLAZONE. [Concomitant]
     Active Substance: METOLAZONE
  2. MULTIVITAMIN [Concomitant]
     Active Substance: VITAMINS
  3. ONGLYZA [Concomitant]
     Active Substance: SAXAGLIPTIN HYDROCHLORIDE
  4. FUROSEMIDE. [Concomitant]
     Active Substance: FUROSEMIDE
  5. NARCAN [Concomitant]
     Active Substance: NALOXONE HYDROCHLORIDE
  6. TAMSULOSIN [Concomitant]
     Active Substance: TAMSULOSIN
  7. SIROLIMUS. [Concomitant]
     Active Substance: SIROLIMUS
  8. ALLOPURINOL. [Concomitant]
     Active Substance: ALLOPURINOL
  9. LEVOTHYROXIN [Concomitant]
     Active Substance: LEVOTHYROXINE
  10. OMEPRAZOLE. [Concomitant]
     Active Substance: OMEPRAZOLE
  11. PANTOPRAZOLE [Concomitant]
     Active Substance: PANTOPRAZOLE
  12. PRAVASTATIN. [Concomitant]
     Active Substance: PRAVASTATIN
  13. PREDNISONE. [Concomitant]
     Active Substance: PREDNISONE
  14. ALENDRONATE [Concomitant]
     Active Substance: ALENDRONATE SODIUM
  15. AZTTHROMYCIN [Concomitant]
  16. DOCUSATE SOD [Concomitant]
  17. FARXIGA [Concomitant]
     Active Substance: DAPAGLIFLOZIN PROPANEDIOL
  18. METOPROL TAR [Concomitant]
  19. PT CHLORIDE ER [Concomitant]
  20. RESTASIS EMU [Concomitant]
  21. ATOVAQUONE. [Concomitant]
     Active Substance: ATOVAQUONE
  22. ESCITALOPRAM [Concomitant]
     Active Substance: ESCITALOPRAM OXALATE
  23. DAPSONE 100 MG TABLETS UNKNOWN [Suspect]
     Active Substance: DAPSONE
     Indication: LUNG TRANSPLANT
     Route: 048
     Dates: start: 20210510, end: 20210625
  24. COMBIVENT [Concomitant]
     Active Substance: ALBUTEROL SULFATE\IPRATROPIUM BROMIDE
  25. DOXEPIN HCL [Concomitant]
     Active Substance: DOXEPIN HYDROCHLORIDE
  26. ERYTHROMYCIN OIN [Concomitant]
  27. IPRATROPIUM SPR [Concomitant]
  28. TIZANIDINE. [Concomitant]
     Active Substance: TIZANIDINE
  29. ENALAPRIL [Concomitant]
     Active Substance: ENALAPRIL
  30. MAG OXIDE [Concomitant]
     Active Substance: MAGNESIUM OXIDE
  31. MAGNESIUM OX [Concomitant]
  32. TESTOST CYP 200MG/ML SDV 1 ML [Suspect]
     Active Substance: TESTOSTERONE CYPIONATE
     Indication: TESTICULAR DISORDER
     Dosage: ?          OTHER DOSE:1 VIVAL (200MG);?
     Route: 041
     Dates: start: 20210325, end: 20210625
  33. OYSCO 500+D [Concomitant]
  34. VITAMIN C [Concomitant]
     Active Substance: ASCORBIC ACID

REACTIONS (1)
  - Death [None]

NARRATIVE: CASE EVENT DATE: 20210625
